FAERS Safety Report 23150657 (Version 1)
Quarter: 2023Q4

REPORT INFORMATION
  Report Type: Spontaneous
  Country: JP (occurrence: JP)
  Receive Date: 20231106
  Receipt Date: 20231106
  Transmission Date: 20240109
  Serious: No
  Sender: FDA-Public Use
  Company Number: JP-SCALL-2023-JP-067800

PATIENT
  Age: 42 Year
  Sex: Male

DRUGS (1)
  1. DUTASTERIDE [Suspect]
     Active Substance: DUTASTERIDE
     Route: 065

REACTIONS (4)
  - Blood zinc decreased [Unknown]
  - Physical deconditioning [Unknown]
  - Alopecia [Unknown]
  - Hypozincaemia [Unknown]
